FAERS Safety Report 6780146-3 (Version None)
Quarter: 2010Q2

REPORT INFORMATION
  Report Type: 
  Country: None (occurrence: None)
  Receive Date: 20100618
  Receipt Date: 20100610
  Transmission Date: 20101027
  Serious: Yes (Other)
  Sender: FDA-Public Use
  Company Number: ES-ABBOTT-10P-144-0649545-00

PATIENT
  Age: 9 Year
  Sex: Male
  Weight: 30.24 kg

DRUGS (1)
  1. BIPERIDEN HYDROCHLORIDE TAB [Suspect]
     Indication: ANTICHOLINERGIC SYNDROME
     Dosage: 0.08 MG/KG DILUTED IN 100ML SALINE
     Route: 042

REACTIONS (1)
  - ANTICHOLINERGIC SYNDROME [None]
